FAERS Safety Report 10219863 (Version 2)
Quarter: 2014Q2

REPORT INFORMATION
  Report Type: Spontaneous
  Country: JP (occurrence: JP)
  Receive Date: 20140605
  Receipt Date: 20140627
  Transmission Date: 20141212
  Serious: Yes (Hospitalization, Other)
  Sender: FDA-Public Use
  Company Number: JP-PFIZER INC-2014150899

PATIENT
  Sex: Female

DRUGS (2)
  1. LYRICA [Suspect]
     Indication: NEUROPATHY PERIPHERAL
     Dosage: 25 MG, 3X/DAY
     Route: 048
  2. TOLEDOMIN [Concomitant]
     Indication: DEPRESSION

REACTIONS (6)
  - Dyskinesia [Recovering/Resolving]
  - Anxiety [Recovering/Resolving]
  - Facial nerve disorder [Unknown]
  - Altered state of consciousness [Recovering/Resolving]
  - Euphoric mood [Recovering/Resolving]
  - Restlessness [Recovering/Resolving]
